FAERS Safety Report 18590533 (Version 1)
Quarter: 2020Q4

REPORT INFORMATION
  Report Type: Spontaneous
  Country: CN (occurrence: CN)
  Receive Date: 20201208
  Receipt Date: 20201208
  Transmission Date: 20210114
  Serious: Yes (Hospitalization)
  Sender: FDA-Public Use
  Company Number: CN-ASTRAZENECA-2020SF61014

PATIENT
  Age: 20820 Day
  Sex: Male
  Weight: 80 kg

DRUGS (4)
  1. BRILINTA [Suspect]
     Active Substance: TICAGRELOR
     Indication: PLATELET AGGREGATION ABNORMAL
     Route: 048
     Dates: start: 20201120, end: 20201120
  2. OXYGEN. [Concomitant]
     Active Substance: OXYGEN
     Dosage: 2.5 L/MIN UNKNOWN
  3. TORASEMIDE [Concomitant]
     Active Substance: TORSEMIDE
     Dosage: 10.0MG UNKNOWN
     Route: 042
  4. CLOPIDOGREL HYDROGEN SULFATE [Concomitant]
     Active Substance: CLOPIDOGREL BISULFATE
     Route: 048

REACTIONS (5)
  - Palpitations [Recovered/Resolved]
  - Dyspnoea [Recovered/Resolved]
  - Blood pressure increased [Recovered/Resolved]
  - Suffocation feeling [Recovered/Resolved]
  - Chest discomfort [Recovered/Resolved]

NARRATIVE: CASE EVENT DATE: 20201120
